FAERS Safety Report 4542430-3 (Version None)
Quarter: 2004Q4

REPORT INFORMATION
  Report Type: 
  Country: None (occurrence: None)
  Receive Date: 20041230
  Receipt Date: 20041221
  Transmission Date: 20050328
  Serious: Yes (Other)
  Sender: FDA-Public Use
  Company Number: FR-ABBOTT-04P-056-0284476-00

PATIENT
  Sex: Male

DRUGS (5)
  1. FENOFIBRATE [Suspect]
     Indication: BLOOD TRIGLYCERIDES INCREASED
     Route: 048
     Dates: start: 20011121, end: 20040409
  2. FENOFIBRATE [Suspect]
     Indication: BLOOD CHOLESTEROL INCREASED
  3. RITONAVIR SOFT GELATIN CAPSULES [Suspect]
     Indication: HIV INFECTION
     Route: 048
     Dates: start: 20040109, end: 20040409
  4. TIPRANAVIR [Suspect]
     Indication: HIV INFECTION
     Route: 048
     Dates: start: 20040109, end: 20040409
  5. FUZEON [Concomitant]
     Indication: HIV INFECTION
     Route: 058
     Dates: start: 20040109, end: 20040409

REACTIONS (2)
  - CYTOLYTIC HEPATITIS [None]
  - LIPASE INCREASED [None]
